FAERS Safety Report 6336742-0 (Version None)
Quarter: 2009Q3

REPORT INFORMATION
  Report Type: 
  Country: None (occurrence: None)
  Receive Date: 20090901
  Receipt Date: 20090827
  Transmission Date: 20100115
  Serious: Yes (Death)
  Sender: FDA-Public Use
  Company Number: FR-CELGENEUS-056-20785-09081219

PATIENT
  Sex: Female
  Weight: 40 kg

DRUGS (1)
  1. THALIDOMIDE [Suspect]
     Route: 048
     Dates: start: 20090101, end: 20090801

REACTIONS (1)
  - CACHEXIA [None]
